FAERS Safety Report 5086707-4 (Version None)
Quarter: 2006Q3

REPORT INFORMATION
  Report Type: 
  Country: None (occurrence: None)
  Receive Date: 20060823
  Receipt Date: 20060818
  Transmission Date: 20061208
  Serious: Yes (Other)
  Sender: FDA-Public Use
  Company Number: AU-JNJFOC-20051004296

PATIENT
  Age: 82 Year
  Sex: Female
  Weight: 50 kg

DRUGS (4)
  1. REMINYL [Suspect]
     Route: 048
  2. REMINYL [Suspect]
     Indication: DEMENTIA
     Route: 048
  3. SIMVASTATIN [Concomitant]
  4. ALENDRONATE SODIUM [Concomitant]

REACTIONS (2)
  - MEDICATION ERROR [None]
  - VOMITING [None]
